FAERS Safety Report 8913148 (Version 1)
Quarter: 2012Q4

REPORT INFORMATION
  Report Type: 
  Country: US (occurrence: US)
  Receive Date: 20121116
  Receipt Date: 20121116
  Transmission Date: 20130627
  Serious: Yes (Hospitalization)
  Sender: FDA-Public Use
  Company Number: US-B.I. PHARMACEUTICALS,INC./RIDGEFIELD-2012-BI-00155BP

PATIENT
  Age: 56 Year
  Sex: Female

DRUGS (8)
  1. DULCOLAX TABLETS [Suspect]
     Indication: CONSTIPATION
     Route: 048
     Dates: start: 20120709, end: 20120710
  2. PYRIDOXINE HCL [Concomitant]
     Route: 048
  3. PRILOSEC [Concomitant]
     Indication: GASTROOESOPHAGEAL REFLUX DISEASE
     Route: 048
  4. ASCORBIC ACID [Concomitant]
     Route: 048
  5. RETINOL [Concomitant]
  6. CALCIUM PANTOTHENATE [Concomitant]
     Route: 048
  7. NICOTINAMIDE [Concomitant]
     Route: 048
  8. ERGOCALCIFEROL [Concomitant]
     Route: 048

REACTIONS (1)
  - Chest pain [Recovered/Resolved]
